FAERS Safety Report 9629665 (Version 1)
Quarter: 2013Q4

REPORT INFORMATION
  Report Type: Spontaneous
  Country: IT (occurrence: IT)
  Receive Date: 20131017
  Receipt Date: 20131017
  Transmission Date: 20140711
  Serious: Yes (Other)
  Sender: FDA-Public Use
  Company Number: IT-TEVA-436304ISR

PATIENT
  Age: 64 Year
  Sex: Female

DRUGS (1)
  1. OXALIPLATINO [Suspect]
     Indication: COLON CANCER
     Route: 042
     Dates: start: 20130902, end: 20130902

REACTIONS (4)
  - Laryngeal oedema [Recovered/Resolved]
  - Laryngeal obstruction [Recovered/Resolved]
  - Drug hypersensitivity [Recovered/Resolved]
  - Dysphonia [Recovered/Resolved]
